FAERS Safety Report 9474056 (Version 2)
Quarter: 2013Q3

REPORT INFORMATION
  Report Type: Spontaneous
  Country: US (occurrence: None)
  Receive Date: 20130820
  Receipt Date: 20130828
  Transmission Date: 20140515
  Serious: Yes (Other)
  Sender: FDA-Public Use
  Company Number: 2013US002254

PATIENT
  Sex: Male

DRUGS (1)
  1. ICLUSIG [Suspect]
     Indication: CHRONIC MYELOID LEUKAEMIA
     Route: 048
     Dates: end: 20130804

REACTIONS (4)
  - Echocardiogram abnormal [None]
  - Tachycardia [None]
  - Hypertension [None]
  - Cardiac disorder [None]
